FAERS Safety Report 4571145-0 (Version None)
Quarter: 2005Q1

REPORT INFORMATION
  Report Type: 
  Country: None (occurrence: None)
  Receive Date: 20050202
  Receipt Date: 20050124
  Transmission Date: 20050727
  Serious: Yes (Hospitalization)
  Sender: FDA-Public Use
  Company Number: 2005019189

PATIENT
  Age: 18 Year
  Sex: Female

DRUGS (2)
  1. NEURONTIN [Suspect]
     Indication: PAIN
     Dosage: 3600 MG, ORAL
     Route: 048
  2. CARBAMAZEPINE [Suspect]
     Indication: PAIN
     Dosage: 1200 MG (400 MG, 3 IN 1 D), ORAL
     Route: 048

REACTIONS (13)
  - ALANINE AMINOTRANSFERASE INCREASED [None]
  - ASPARTATE AMINOTRANSFERASE INCREASED [None]
  - DRUG HYPERSENSITIVITY [None]
  - DRUG RASH WITH EOSINOPHILIA AND SYSTEMIC SYMPTOMS [None]
  - FACE OEDEMA [None]
  - HEPATOMEGALY [None]
  - LEUKOCYTOSIS [None]
  - LYMPHADENOPATHY [None]
  - LYMPHOCYTE MORPHOLOGY ABNORMAL [None]
  - LYMPHOCYTE TRANSFORMATION TEST POSITIVE [None]
  - OEDEMA PERIPHERAL [None]
  - PYREXIA [None]
  - RASH [None]
